FAERS Safety Report 9030253 (Version 1)
Quarter: 2013Q1

REPORT INFORMATION
  Report Type: Spontaneous
  Country: PT (occurrence: PT)
  Receive Date: 20130122
  Receipt Date: 20130122
  Transmission Date: 20140127
  Serious: Yes (Other)
  Sender: FDA-Public Use
  Company Number: PT-ASTRAZENECA-2013SE02598

PATIENT
  Age: 33028 Day
  Sex: Female
  Weight: 42 kg

DRUGS (6)
  1. CRESTOR [Suspect]
     Indication: HYPERCHOLESTEROLAEMIA
     Route: 048
     Dates: start: 20120903, end: 20120911
  2. OLSAR PLUS [Concomitant]
     Indication: HYPERTENSION
     Dosage: 20 MG/12.5 MG ONE PER DAY
     Route: 048
  3. VASTAREL [Concomitant]
     Indication: VENOUS INSUFFICIENCY
     Route: 048
  4. CONCOR [Concomitant]
     Indication: HYPERTENSION
     Route: 048
  5. LEXOTAN [Concomitant]
     Indication: INSOMNIA
     Route: 048
  6. PRIMALAN [Concomitant]
     Indication: RHINITIS ALLERGIC
     Route: 048

REACTIONS (3)
  - Skin burning sensation [Recovered/Resolved]
  - Pruritus [Recovered/Resolved]
  - Rash macular [Recovered/Resolved]
